FAERS Safety Report 9668584 (Version 1)
Quarter: 2013Q4

REPORT INFORMATION
  Report Type: Spontaneous
  Country: SE (occurrence: SE)
  Receive Date: 20131105
  Receipt Date: 20131105
  Transmission Date: 20140711
  Serious: Yes (Other)
  Sender: FDA-Public Use
  Company Number: SE-MERCK-1311SWE000297

PATIENT
  Age: 67 Year
  Sex: Male

DRUGS (12)
  1. CANCIDAS [Suspect]
     Indication: SPONDYLITIS
     Dosage: 70 MG, UNK
     Route: 042
     Dates: start: 20130808, end: 201308
  2. CANCIDAS [Suspect]
     Indication: SPONDYLITIS
     Dosage: 50 MG, UNK
     Route: 042
     Dates: start: 201308, end: 20130829
  3. GABAPENTIN [Concomitant]
  4. BISOCARD [Concomitant]
  5. HERACILLIN [Concomitant]
  6. LOSARTAN POTASSIUM [Concomitant]
     Route: 048
  7. SAROTEN [Concomitant]
  8. MORPHINE [Concomitant]
  9. PRONAXEN [Concomitant]
  10. TROMBYL [Concomitant]
  11. PREDNISOLONE [Concomitant]
  12. DEPOLAN (MORPHINE HYDROCHLORIDE) [Concomitant]

REACTIONS (2)
  - Hearing impaired [Unknown]
  - Confusional state [Unknown]
